FAERS Safety Report 8539235-5 (Version None)
Quarter: 2012Q3

REPORT INFORMATION
  Report Type: 
  Country: None (occurrence: None)
  Receive Date: 20120726
  Receipt Date: 20120717
  Transmission Date: 20120928
  Serious: Yes (Other)
  Sender: FDA-Public Use
  Company Number: CA-JNJFOC-20120603012

PATIENT
  Sex: Female
  Weight: 80 kg

DRUGS (4)
  1. MATERNAL VITAMINS [Concomitant]
     Route: 065
  2. REMICADE [Suspect]
     Indication: COLITIS ULCERATIVE
     Dosage: HAS HAD 26 INFUSIONS
     Route: 042
     Dates: start: 20090505
  3. IRON [Concomitant]
     Route: 065
  4. ESCITALOPRAM [Concomitant]
     Route: 065

REACTIONS (4)
  - ROAD TRAFFIC ACCIDENT [None]
  - MATERNAL EXPOSURE DURING PREGNANCY [None]
  - GESTATIONAL DIABETES [None]
  - URINARY TRACT INFECTION [None]
